FAERS Safety Report 4347110-5 (Version None)
Quarter: 2004Q2

REPORT INFORMATION
  Report Type: 
  Country: None (occurrence: None)
  Receive Date: 20040422
  Receipt Date: 20040413
  Transmission Date: 20050107
  Serious: Yes (Hospitalization)
  Sender: FDA-Public Use
  Company Number: DE-JNJFOC-20040402445

PATIENT
  Age: 49 Year
  Sex: Male

DRUGS (5)
  1. REMICADE [Suspect]
     Indication: ANKYLOSING SPONDYLITIS
     Dosage: 400 MG, 1 IN 6 WEEK, INTRAVENOUS
     Route: 042
     Dates: start: 20010212
  2. INDOMETHACIN [Suspect]
     Indication: ANKYLOSING SPONDYLITIS
     Dosage: 100 MG
  3. TILIDIN (TILIDINE) [Suspect]
     Indication: ANKYLOSING SPONDYLITIS
  4. OMEPRAZOLE [Concomitant]
  5. INFLANEFRAN (INFLANEFRAN) [Concomitant]

REACTIONS (3)
  - FALL [None]
  - SKULL FRACTURE [None]
  - SUBDURAL HAEMATOMA [None]
